FAERS Safety Report 11058192 (Version 1)
Quarter: 2015Q2

REPORT INFORMATION
  Report Type: Spontaneous
  Country: US (occurrence: None)
  Receive Date: 20150422
  Receipt Date: 20150422
  Transmission Date: 20150821
  Serious: Yes (Other)
  Sender: FDA-Public Use
  Company Number: None

PATIENT
  Age: 36 Year
  Sex: Female
  Weight: 54.43 kg

DRUGS (2)
  1. CONTRACEPTIVE SMART WOMEN^S CHOICE [Suspect]
     Active Substance: UNSPECIFIED INGREDIENT
     Indication: CONTRACEPTION
     Dates: start: 20141130, end: 20141130
  2. NETI POT WITH SALINE [Concomitant]

REACTIONS (2)
  - Physical product label issue [None]
  - Application site pain [None]
